FAERS Safety Report 7768652-6 (Version None)
Quarter: 2011Q3

REPORT INFORMATION
  Report Type: 
  Country: None (occurrence: None)
  Receive Date: 20110922
  Receipt Date: 20101227
  Transmission Date: 20111222
  Serious: No
  Sender: FDA-Public Use
  Company Number: US-ASTRAZENECA-2010SE60936

PATIENT
  Sex: Male

DRUGS (1)
  1. SEROQUEL [Suspect]
     Route: 048
     Dates: start: 20020101

REACTIONS (3)
  - IMPULSE-CONTROL DISORDER [None]
  - DIABETES MELLITUS [None]
  - LOSS OF EMPLOYMENT [None]
